FAERS Safety Report 14613911 (Version 1)
Quarter: 2018Q1

REPORT INFORMATION
  Report Type: Spontaneous
  Country: US (occurrence: US)
  Receive Date: 20180308
  Receipt Date: 20180308
  Transmission Date: 20180509
  Serious: Yes (Disabling)
  Sender: FDA-Public Use
  Company Number: None

PATIENT
  Age: 68 Year
  Sex: Female
  Weight: 93.44 kg

DRUGS (12)
  1. TUMERIC/CURCIUM [Concomitant]
  2. TYNOL-RAPID RELEASE GEL [Concomitant]
  3. TRIAMTERENE HCTZ 37.5MG-25MG [Suspect]
     Active Substance: HYDROCHLOROTHIAZIDE\TRIAMTERENE
     Indication: PRODUCT USED FOR UNKNOWN INDICATION
     Dosage: 37.5-25MG 1 PILL DAILY MOUTH
     Route: 048
     Dates: start: 20180111, end: 20180116
  4. PRAVASTATIN SODIUM. [Concomitant]
     Active Substance: PRAVASTATIN SODIUM
  5. CYCLOBENZAPRINE HCL [Concomitant]
     Active Substance: CYCLOBENZAPRINE HYDROCHLORIDE
  6. TRIAMTERENE HCTZ 37.5MG-25MG [Suspect]
     Active Substance: HYDROCHLOROTHIAZIDE\TRIAMTERENE
     Indication: HYPERTENSION
     Dosage: 37.5-25MG 1 PILL DAILY MOUTH
     Route: 048
     Dates: start: 20180111, end: 20180116
  7. CITRICAL + D3 [Concomitant]
  8. TRIAMTERENE HCTZ 37.5MG-25MG [Suspect]
     Active Substance: HYDROCHLOROTHIAZIDE\TRIAMTERENE
     Dosage: 37.5-25MG 1 PILL DAILY MOUTH
     Route: 048
     Dates: start: 20180201, end: 20180202
  9. VITAMIN E [Concomitant]
     Active Substance: .ALPHA.-TOCOPHEROL
  10. WOMEN 1 DAY VIT [Concomitant]
  11. LEVOTHYROXINE SODIUM. [Concomitant]
     Active Substance: LEVOTHYROXINE SODIUM
  12. MELOXICAM. [Concomitant]
     Active Substance: MELOXICAM

REACTIONS (3)
  - Chest discomfort [None]
  - Peripheral swelling [None]
  - Headache [None]

NARRATIVE: CASE EVENT DATE: 20180111
